FAERS Safety Report 6734644-9 (Version None)
Quarter: 2010Q2

REPORT INFORMATION
  Report Type: 
  Country: None (occurrence: None)
  Receive Date: 20100519
  Receipt Date: 20100519
  Transmission Date: 20101027
  Serious: No
  Sender: FDA-Public Use
  Company Number: None

PATIENT
  Sex: Female
  Weight: 62 kg

DRUGS (2)
  1. GAMMAGARD LIQUID [Suspect]
     Indication: BLOOD IMMUNOGLOBULIN M INCREASED
     Dosage: 40 GM Q 3 WEEKS IV
     Route: 042
     Dates: start: 20100514
  2. GAMMAGARD LIQUID [Suspect]
     Indication: IMMUNODEFICIENCY
     Dosage: 40 GM Q 3 WEEKS IV
     Route: 042
     Dates: start: 20100514

REACTIONS (1)
  - RASH PRURITIC [None]
